FAERS Safety Report 6919026-9 (Version None)
Quarter: 2010Q3

REPORT INFORMATION
  Report Type: 
  Country: None (occurrence: None)
  Receive Date: 20100727
  Receipt Date: 20100706
  Transmission Date: 20110219
  Serious: No
  Sender: FDA-Public Use
  Company Number: 2010-00518

PATIENT
  Age: 64 Year
  Sex: Female
  Weight: 90.7194 kg

DRUGS (4)
  1. ZICAM ALLERGY RELIEF GEL SWABS [Suspect]
     Dosage: BID X 3 DAYS
     Dates: start: 20100501, end: 20100501
  2. SYNTHROID [Concomitant]
  3. MULTIVITAMIN (WEGMAN'S OR GNC) [Concomitant]
  4. CALCIUM [Concomitant]

REACTIONS (2)
  - AGEUSIA [None]
  - ANOSMIA [None]
